FAERS Safety Report 6975208-1 (Version None)
Quarter: 2010Q3

REPORT INFORMATION
  Report Type: 
  Country: None (occurrence: None)
  Receive Date: 20100910
  Receipt Date: 20090224
  Transmission Date: 20110219
  Serious: No
  Sender: FDA-Public Use
  Company Number: US-WYE-H08336809

PATIENT
  Age: 25 Year
  Sex: Male
  Weight: 63.56 kg

DRUGS (4)
  1. PRISTIQ [Suspect]
     Indication: DEPRESSION
     Route: 048
     Dates: start: 20090127
  2. PRISTIQ [Suspect]
     Indication: OBSESSIVE-COMPULSIVE DISORDER
  3. IRON [Concomitant]
  4. DOXYCYCLINE [Suspect]
     Indication: ACNE
     Dosage: UNKNOWN
     Dates: start: 20090214

REACTIONS (3)
  - DELUSION OF GRANDEUR [None]
  - DEPERSONALISATION [None]
  - ENERGY INCREASED [None]
